FAERS Safety Report 8339614-5 (Version None)
Quarter: 2012Q2

REPORT INFORMATION
  Report Type: 
  Country: None (occurrence: None)
  Receive Date: 20120507
  Receipt Date: 20110729
  Transmission Date: 20120825
  Serious: No
  Sender: FDA-Public Use
  Company Number: US-TEVA-2011002827

PATIENT
  Sex: Female
  Weight: 59.02 kg

DRUGS (2)
  1. NUVIGIL [Suspect]
     Dosage: 375 MILLIGRAM;
     Route: 048
     Dates: start: 20110602, end: 20110602
  2. NUVIGIL [Suspect]
     Indication: NARCOLEPSY
     Dosage: 250 MILLIGRAM;
     Route: 048
     Dates: start: 20110527, end: 20110602

REACTIONS (4)
  - FATIGUE [None]
  - DRUG PRESCRIBING ERROR [None]
  - DRUG INEFFECTIVE [None]
  - NAUSEA [None]
